FAERS Safety Report 9004776 (Version 1)
Quarter: 2013Q1

REPORT INFORMATION
  Report Type: Spontaneous
  Country: US (occurrence: None)
  Receive Date: 20130107
  Receipt Date: 20130107
  Transmission Date: 20140127
  Serious: Yes (Other)
  Sender: FDA-Public Use
  Company Number: None

PATIENT
  Age: 21 Year
  Sex: Male
  Weight: 63.5 kg

DRUGS (2)
  1. TRAMADOL [Suspect]
     Indication: MUSCULOSKELETAL PAIN
     Dosage: 50-100MG Q 4 HR PRN PO
     Route: 048
     Dates: start: 20121211, end: 20121218
  2. TRAMADOL [Suspect]
     Indication: PROCEDURAL PAIN
     Dosage: 50-100MG Q 4 HR PRN PO
     Route: 048
     Dates: start: 20121211, end: 20121218

REACTIONS (1)
  - Convulsion [None]
